FAERS Safety Report 7988062-6 (Version None)
Quarter: 2011Q4

REPORT INFORMATION
  Report Type: 
  Country: None (occurrence: None)
  Receive Date: 20111216
  Receipt Date: 20110526
  Transmission Date: 20120403
  Serious: No
  Sender: FDA-Public Use
  Company Number: US-BRISTOL-MYERS SQUIBB COMPANY-15781883

PATIENT
  Age: 10 Year
  Sex: Male

DRUGS (3)
  1. ABILIFY [Suspect]
     Indication: BIPOLAR DISORDER
     Dosage: INITIAL DOSE:2 MG AND THEN INCREASED TO 5 MG.
     Route: 048
     Dates: start: 20110427
  2. NORTRIPTYLINE HCL [Concomitant]
  3. GUANFACINE HYDROCHLORIDE [Concomitant]

REACTIONS (1)
  - DROOLING [None]
